FAERS Safety Report 7079323-6 (Version None)
Quarter: 2010Q4

REPORT INFORMATION
  Report Type: 
  Country: None (occurrence: None)
  Receive Date: 20101102
  Receipt Date: 20100707
  Transmission Date: 20110411
  Serious: Yes (Hospitalization)
  Sender: FDA-Public Use
  Company Number: A0843245A

PATIENT
  Age: 57 Year
  Sex: Female

DRUGS (9)
  1. RYTHMOL SR [Suspect]
     Indication: ATRIAL FIBRILLATION
     Dosage: 325MG TWICE PER DAY
     Route: 048
     Dates: start: 20100130, end: 20100130
  2. METOPROLOL (SLOW RELEASE) [Concomitant]
     Dosage: 25MG PER DAY
     Route: 048
  3. LOVENOX [Concomitant]
  4. WARFARIN [Concomitant]
     Dosage: 5MG PER DAY
     Route: 048
  5. ZOLPIDEM [Concomitant]
     Dosage: 10MG AT NIGHT
     Route: 048
  6. LEVOTHYROXINE SODIUM [Concomitant]
     Dosage: 50MCG PER DAY
     Route: 048
  7. BI-EST [Concomitant]
     Dosage: 2.5MG TWICE PER DAY
     Route: 048
  8. DIGOXIN [Concomitant]
     Dosage: .25MG PER DAY
     Route: 048
     Dates: end: 20100101
  9. FLUOXETINE [Concomitant]
     Dosage: 40MG PER DAY
     Route: 048

REACTIONS (1)
  - ATRIAL FIBRILLATION [None]
